FAERS Safety Report 16765497 (Version 1)
Quarter: 2019Q3

REPORT INFORMATION
  Report Type: Spontaneous
  Country: DE (occurrence: DE)
  Receive Date: 20190903
  Receipt Date: 20190903
  Transmission Date: 20191005
  Serious: Yes (Hospitalization)
  Sender: FDA-Public Use
  Company Number: DE-B.I. PHARMACEUTICALS,INC./RIDGEFIELD-2019-BI-034921

PATIENT
  Age: 76 Year
  Sex: Male
  Weight: 70 kg

DRUGS (2)
  1. PRAXBIND [Suspect]
     Active Substance: IDARUCIZUMAB
     Indication: PROCOAGULANT THERAPY
     Route: 065
     Dates: start: 20190813
  2. PRAXBIND [Suspect]
     Active Substance: IDARUCIZUMAB
     Dosage: SECOND DOSE OF PRAXBIND WITHIN 1 WEEK OF FIRST PRAXBIND ADMINISTRATION
     Route: 065

REACTIONS (1)
  - Haemorrhage [Unknown]
